FAERS Safety Report 26007749 (Version 1)
Quarter: 2025Q4

REPORT INFORMATION
  Report Type: Report from Study
  Country: US (occurrence: US)
  Receive Date: 20251106
  Receipt Date: 20251106
  Transmission Date: 20260118
  Serious: Yes (Hospitalization)
  Sender: IOVANCE BIOTHERAPEUTICS MANUFACTURING LLC
  Company Number: None

PATIENT
  Age: 63 Year
  Sex: Male
  Weight: 91 kg

DRUGS (25)
  1. PROLEUKIN [Suspect]
     Active Substance: ALDESLEUKIN
     Indication: Product used for unknown indication
     Dosage: 109.8
     Route: 065
     Dates: start: 20251014, end: 20251015
  2. PEMBROLIZUMAB [Suspect]
     Active Substance: PEMBROLIZUMAB
     Indication: Product used for unknown indication
     Dosage: 200
     Route: 065
     Dates: start: 20250812
  3. PEMBROLIZUMAB [Suspect]
     Active Substance: PEMBROLIZUMAB
     Dosage: 200
     Route: 065
     Dates: start: 20250904
  4. CYCLOPHOSPHAMIDE [Suspect]
     Active Substance: CYCLOPHOSPHAMIDE
     Indication: Product used for unknown indication
     Dosage: 5480
     Route: 065
     Dates: start: 20251009
  5. CYCLOPHOSPHAMIDE [Suspect]
     Active Substance: CYCLOPHOSPHAMIDE
     Dosage: 5480
     Route: 065
     Dates: start: 20251010
  6. FLUDARABINE [Suspect]
     Active Substance: FLUDARABINE PHOSPHATE
     Indication: Product used for unknown indication
     Dosage: 54
     Route: 065
     Dates: start: 20251009
  7. FLUDARABINE [Suspect]
     Active Substance: FLUDARABINE PHOSPHATE
     Dosage: 54
     Route: 065
     Dates: start: 20251010
  8. FLUDARABINE [Suspect]
     Active Substance: FLUDARABINE PHOSPHATE
     Dosage: 54
     Route: 065
     Dates: start: 20251011
  9. FLUDARABINE [Suspect]
     Active Substance: FLUDARABINE PHOSPHATE
     Dosage: 54
     Route: 065
     Dates: start: 20251012
  10. FLUDARABINE [Suspect]
     Active Substance: FLUDARABINE PHOSPHATE
     Dosage: 54
     Route: 065
     Dates: start: 20251013
  11. LIFILEUCEL [Suspect]
     Active Substance: LIFILEUCEL
     Indication: Product used for unknown indication
     Dosage: 300
     Route: 065
     Dates: start: 20251014, end: 20251014
  12. BUPROPION [Concomitant]
     Active Substance: BUPROPION
     Indication: Product used for unknown indication
     Dosage: 150 MG,QD
     Route: 065
     Dates: start: 20250710
  13. BUPROPION [Concomitant]
     Active Substance: BUPROPION
     Dosage: 150 MG,QD
     Route: 065
     Dates: start: 20250911
  14. CELECOXIB [Concomitant]
     Active Substance: CELECOXIB
     Indication: Product used for unknown indication
     Dosage: 200 MG,BID (TWICE DAILY)
     Route: 048
     Dates: start: 20250822
  15. CELECOXIB [Concomitant]
     Active Substance: CELECOXIB
     Dosage: 200 MG,BID (TWICE DAILY)
     Route: 048
     Dates: start: 20250917
  16. GABAPENTIN [Concomitant]
     Active Substance: GABAPENTIN
     Indication: Product used for unknown indication
     Dosage: 300 MG,QD
     Route: 048
     Dates: start: 20250822
  17. GABAPENTIN [Concomitant]
     Active Substance: GABAPENTIN
     Dosage: 300 MG,QD
     Route: 048
     Dates: start: 20250917
  18. FAMOTIDINE [Concomitant]
     Active Substance: FAMOTIDINE
     Indication: Product used for unknown indication
     Dosage: 20 MG,PRN (AS NEEDED)
     Route: 042
     Dates: start: 20251008
  19. LIDOCAINE [Concomitant]
     Active Substance: LIDOCAINE
     Indication: Product used for unknown indication
     Dosage: 10 MG,ONCE
     Route: 023
     Dates: start: 20251008, end: 20251008
  20. OLANZAPINE [Concomitant]
     Active Substance: OLANZAPINE
     Indication: Product used for unknown indication
     Dosage: 5 MG,QD
     Route: 048
     Dates: start: 20251008, end: 20251013
  21. SENNA [Concomitant]
     Active Substance: SENNOSIDES
     Indication: Product used for unknown indication
     Dosage: 8.6 MG,PRN (AS NEEDED)
     Route: 048
     Dates: start: 20251008
  22. SODIUM CHLORIDE [Concomitant]
     Active Substance: SODIUM CHLORIDE
     Indication: Product used for unknown indication
     Dosage: 1000 ML,PRN (AS NEEDED)
     Route: 042
     Dates: start: 20251008
  23. MESNA [Concomitant]
     Active Substance: MESNA
     Indication: Product used for unknown indication
     Dosage: 1350
     Route: 042
     Dates: start: 20251009, end: 20251009
  24. MESNA [Concomitant]
     Active Substance: MESNA
     Dosage: 1350
     Route: 042
     Dates: start: 20251010, end: 20251010
  25. TRIAMCINOLONE [Concomitant]
     Active Substance: TRIAMCINOLONE
     Indication: Product used for unknown indication
     Dosage: 0.1 PERCENTAGE,PRN (AS NEEDED)
     Route: 061
     Dates: start: 20251018

REACTIONS (1)
  - Rash maculo-papular [Not Recovered/Not Resolved]

NARRATIVE: CASE EVENT DATE: 20251018
